FAERS Safety Report 7560326-X (Version None)
Quarter: 2011Q2

REPORT INFORMATION
  Report Type: 
  Country: None (occurrence: None)
  Receive Date: 20110621
  Receipt Date: 20110613
  Transmission Date: 20111010
  Serious: Yes (Life-Threatening, Hospitalization)
  Sender: FDA-Public Use
  Company Number: IT-TEVA-286924ISR

PATIENT
  Age: 54 Year
  Sex: Female

DRUGS (3)
  1. FLUOXETINE HCL [Suspect]
  2. METFORMIN+SENNA [Suspect]
  3. CASCARA TAB [Suspect]

REACTIONS (2)
  - VENTRICULAR FIBRILLATION [None]
  - CARDIAC ARREST [None]
